FAERS Safety Report 5415902-7 (Version None)
Quarter: 2007Q3

REPORT INFORMATION
  Report Type: 
  Country: None (occurrence: None)
  Receive Date: 20070815
  Receipt Date: 20070803
  Transmission Date: 20080115
  Serious: Yes (Hospitalization)
  Sender: FDA-Public Use
  Company Number: US-PFIZER INC-2007064605

PATIENT
  Age: 63 Year
  Sex: Male

DRUGS (2)
  1. VARENICLINE TABLETS [Suspect]
     Indication: SMOKING CESSATION THERAPY
  2. VALPROIC ACID [Concomitant]
     Dosage: DAILY DOSE:2GRAM-TEXT:UP TO 2G DAILY

REACTIONS (1)
  - MANIA [None]
